FAERS Safety Report 6907969-1 (Version None)
Quarter: 2010Q3

REPORT INFORMATION
  Report Type: 
  Country: None (occurrence: None)
  Receive Date: 20100805
  Receipt Date: 20100730
  Transmission Date: 20110219
  Serious: Yes (Life-Threatening, Hospitalization, Other)
  Sender: FDA-Public Use
  Company Number: PHHO2010IT09126

PATIENT
  Sex: Male
  Weight: 104 kg

DRUGS (7)
  1. ALISKIREN [Suspect]
     Indication: CORONARY ARTERY DISEASE
     Dosage: UNK
     Route: 048
  2. BLINDED ALISKIREN ALI+TAB [Suspect]
     Indication: CORONARY ARTERY DISEASE
     Dosage: NO TREATMENT
  3. BLINDED NO TREATMENT RECEIVED NOMED [Suspect]
     Indication: CORONARY ARTERY DISEASE
     Dosage: NO TREATMENT
  4. BLINDED PLACEBO COMP-PLA+ [Suspect]
     Indication: CORONARY ARTERY DISEASE
     Dosage: NO TREATMENT
  5. CONTRAST MEDIA [Suspect]
  6. METFORMIN HCL [Concomitant]
     Indication: DIABETES MELLITUS
     Dosage: UNK
     Dates: start: 20050101
  7. OMEPRAZID [Concomitant]
     Indication: HYPERTENSION
     Dosage: UNK
     Dates: start: 20080101

REACTIONS (5)
  - DEHYDRATION [None]
  - DIARRHOEA [None]
  - LACTIC ACIDOSIS [None]
  - RASH [None]
  - RENAL FAILURE ACUTE [None]
